FAERS Safety Report 22971832 (Version 2)
Quarter: 2025Q3

REPORT INFORMATION
  Report Type: Spontaneous
  Country: US (occurrence: US)
  Receive Date: 20230922
  Receipt Date: 20250704
  Transmission Date: 20251020
  Serious: No
  Sender: SANOFI AVENTIS
  Company Number: US-SA-SAC20230920000008

PATIENT
  Age: 61 Year
  Sex: Male

DRUGS (2)
  1. DUPIXENT [Suspect]
     Active Substance: DUPILUMAB
     Indication: Neurodermatitis
     Dosage: 300 MG, QOW
     Route: 058
     Dates: start: 202305
  2. DUPIXENT [Suspect]
     Active Substance: DUPILUMAB
     Indication: Dermatitis allergic
     Dosage: 300 MG, QOW
     Route: 058

REACTIONS (3)
  - Contusion [Recovering/Resolving]
  - Dermatitis allergic [Unknown]
  - Condition aggravated [Unknown]

NARRATIVE: CASE EVENT DATE: 20230101
